FAERS Safety Report 6476264-X (Version None)
Quarter: 2009Q4

REPORT INFORMATION
  Report Type: 
  Country: None (occurrence: None)
  Receive Date: 20091206
  Receipt Date: 20091018
  Transmission Date: 20100525
  Serious: No
  Sender: FDA-Public Use
  Company Number: US-AMGEN-KDL369925

PATIENT
  Sex: Female

DRUGS (1)
  1. ENBREL [Suspect]
     Indication: PSORIASIS
     Route: 058
     Dates: start: 20090515

REACTIONS (5)
  - BLOOD URINE PRESENT [None]
  - BODY TEMPERATURE INCREASED [None]
  - INJECTION SITE ERYTHEMA [None]
  - NAUSEA [None]
  - SLUGGISHNESS [None]
